FAERS Safety Report 19382528 (Version 3)
Quarter: 2021Q3

REPORT INFORMATION
  Report Type: Spontaneous
  Country: US (occurrence: US)
  Receive Date: 20210607
  Receipt Date: 20210816
  Transmission Date: 20211014
  Serious: Yes (Hospitalization, Other)
  Sender: FDA-Public Use
  Company Number: US-TEVA-2021-US-1920498

PATIENT
  Age: 71 Year
  Sex: Male
  Weight: 104.42 kg

DRUGS (28)
  1. VALSARTAN ACETRIS [Suspect]
     Active Substance: VALSARTAN
     Dosage: 472180012A
     Route: 065
     Dates: start: 20160829, end: 20161127
  2. METFORMIN HCL [Concomitant]
     Active Substance: METFORMIN HYDROCHLORIDE
     Indication: DIABETES MELLITUS
     Dosage: 1 TAB IN AM AND HALF TAB IN PM
     Route: 065
     Dates: start: 20091214, end: 20190819
  3. PLAVIX [Concomitant]
     Active Substance: CLOPIDOGREL BISULFATE
     Indication: COAGULOPATHY
     Dosage: FOR 25 DAYS
     Route: 065
     Dates: start: 20091208, end: 20100318
  4. SIMVASTATIN. [Concomitant]
     Active Substance: SIMVASTATIN
     Indication: HYPERLIPIDAEMIA
     Route: 065
  5. VALSARTAN AUROBINDO [Suspect]
     Active Substance: VALSARTAN
     Dosage: 470180016A,470180032A
     Route: 065
     Dates: start: 20191021, end: 20200121
  6. CILOSTAZOL. [Concomitant]
     Active Substance: CILOSTAZOL
     Indication: ANTICOAGULANT THERAPY
     Dosage: 50 MILLIGRAM DAILY;
     Route: 065
     Dates: start: 20190331, end: 20190730
  7. DEXAMETHASONE. [Concomitant]
     Active Substance: DEXAMETHASONE
     Route: 065
  8. VENTOLIN HFA [Concomitant]
     Active Substance: ALBUTEROL SULFATE
     Route: 065
  9. GEMFIBROZIL. [Concomitant]
     Active Substance: GEMFIBROZIL
     Route: 065
  10. METOPROLOL SUCCINATE. [Concomitant]
     Active Substance: METOPROLOL SUCCINATE
     Dosage: 50 MILLIGRAM DAILY;
     Route: 048
  11. TOPROL XL [Concomitant]
     Active Substance: METOPROLOL SUCCINATE
     Route: 065
  12. AMOXICILLIN?CLAVULANATE POTASSIUM [Concomitant]
     Active Substance: AMOXICILLIN\CLAVULANATE POTASSIUM
     Route: 065
  13. VALSARTAN TEVA [Suspect]
     Active Substance: VALSARTAN
     Indication: BLOOD POTASSIUM DECREASED
     Route: 065
     Dates: start: 20160531, end: 20160829
  14. VALSARTAN ACETRIS [Suspect]
     Active Substance: VALSARTAN
     Indication: BLOOD POTASSIUM DECREASED
     Dosage: 472180012A
     Route: 065
     Dates: start: 20160829, end: 20161127
  15. VALSARTAN ALEMBIC [Suspect]
     Active Substance: VALSARTAN
     Route: 065
  16. VALSARTAN. [Suspect]
     Active Substance: VALSARTAN
     Indication: HYPERTENSION
     Route: 065
  17. VALSARTAN AUROBINDO [Suspect]
     Active Substance: VALSARTAN
     Indication: BLOOD POTASSIUM DECREASED
     Dosage: 472180013A?14A
     Route: 065
     Dates: start: 20150427, end: 20150727
  18. VALSARTAN AUROBINDO [Suspect]
     Active Substance: VALSARTAN
     Dosage: 470180016A,470180032A
     Route: 065
     Dates: start: 20190730, end: 20191030
  19. VALSARTAN ALEMBIC [Suspect]
     Active Substance: VALSARTAN
     Indication: HYPERTENSION
     Route: 065
  20. ASPIRIN. [Concomitant]
     Active Substance: ASPIRIN
     Indication: CARDIAC DISORDER
     Dosage: 81 MILLIGRAM DAILY; TO PRESENT
     Route: 065
     Dates: start: 20090801
  21. PREDNISONE. [Concomitant]
     Active Substance: PREDNISONE
     Indication: BELL^S PALSY
     Route: 065
  22. DIOVAN [Suspect]
     Active Substance: VALSARTAN
     Indication: HYPERTENSION
     Route: 065
  23. SULFAMETHOXAZOLE?TRIMETHOPRIM [Concomitant]
     Active Substance: SULFAMETHOXAZOLE\TRIMETHOPRIM
     Dosage: 800?160 MG
     Route: 065
  24. VALSARTAN MYLAN [Suspect]
     Active Substance: VALSARTAN
     Indication: HYPERTENSION
     Dosage: 3086684,3086687
     Route: 065
     Dates: start: 20200903, end: 20201209
  25. VALSARTAN MACLEODS [Suspect]
     Active Substance: VALSARTAN
     Indication: HYPERTENSION
     Route: 065
  26. VALSARTAN OHMS LAB [Suspect]
     Active Substance: VALSARTAN
     Indication: HYPERTENSION
     Route: 065
  27. VALSARTAN SANDOZ [Suspect]
     Active Substance: VALSARTAN
     Indication: HYPERTENSION
     Route: 065
  28. LISINOPRIL. [Concomitant]
     Active Substance: LISINOPRIL
     Indication: HYPERTENSION
     Dosage: 20 MILLIGRAM DAILY;
     Route: 065
     Dates: start: 20140220, end: 20150228

REACTIONS (4)
  - Heart rate increased [Recovered/Resolved]
  - Acute myocardial infarction [Recovered/Resolved]
  - Atrial flutter [Recovered/Resolved]
  - Oesophageal carcinoma [Recovered/Resolved]

NARRATIVE: CASE EVENT DATE: 20170601
